FAERS Safety Report 10582470 (Version 1)
Quarter: 2014Q4

REPORT INFORMATION
  Report Type: Spontaneous
  Country: US (occurrence: US)
  Receive Date: 20141113
  Receipt Date: 20141113
  Transmission Date: 20150529
  Serious: No
  Sender: FDA-Public Use
  Company Number: US-ENDO PHARMACEUTICALS INC.-VALS20140012

PATIENT
  Age: 64 Year
  Sex: Female

DRUGS (2)
  1. VALSTAR [Suspect]
     Active Substance: VALRUBICIN
     Indication: PRODUCT USED FOR UNKNOWN INDICATION
     Route: 043
     Dates: start: 20140211, end: 20140217
  2. VALSTAR [Suspect]
     Active Substance: VALRUBICIN
     Route: 043
     Dates: start: 20140218

REACTIONS (6)
  - Depression [Recovered/Resolved]
  - Migraine [Recovered/Resolved]
  - Back pain [Recovered/Resolved]
  - Nocturia [Recovered/Resolved]
  - Urinary tract infection [Recovered/Resolved]
  - Diarrhoea [Recovered/Resolved]

NARRATIVE: CASE EVENT DATE: 201402
